FAERS Safety Report 8351032-2 (Version None)
Quarter: 2012Q2

REPORT INFORMATION
  Report Type: 
  Country: None (occurrence: None)
  Receive Date: 20120510
  Receipt Date: 20120508
  Transmission Date: 20120825
  Serious: Yes (Death)
  Sender: FDA-Public Use
  Company Number: US-BAYER-2012-045577

PATIENT
  Age: 54 Year
  Sex: Male

DRUGS (1)
  1. NEXAVAR [Suspect]
     Dosage: 400 MG, BID
     Dates: start: 20111202, end: 20120301

REACTIONS (1)
  - NEOPLASM MALIGNANT [None]
